FAERS Safety Report 17034840 (Version 1)
Quarter: 2019Q4

REPORT INFORMATION
  Report Type: Report from Study
  Country: CA (occurrence: CA)
  Receive Date: 20191115
  Receipt Date: 20191115
  Transmission Date: 20200122
  Serious: Yes (Other)
  Sender: FDA-Public Use
  Company Number: CA-ORION CORPORATION ORION PHARMA-TREX2019-5416

PATIENT
  Age: 63 Year
  Sex: Male

DRUGS (12)
  1. BETAMETHASONE DIPROPIONATE;CALCIPOTRIOL [Concomitant]
     Route: 065
  2. VIOXX [Concomitant]
     Active Substance: ROFECOXIB
     Route: 065
  3. CELEBREX [Concomitant]
     Active Substance: CELECOXIB
     Route: 065
  4. COCONUT OIL [Concomitant]
     Active Substance: COCONUT OIL
     Route: 065
  5. IBUPROFEN;PSEUDOEPHEDRINE [Concomitant]
     Route: 065
  6. HUMIRA [Concomitant]
     Active Substance: ADALIMUMAB
     Route: 065
  7. SIMPONI [Concomitant]
     Active Substance: GOLIMUMAB
     Route: 065
  8. COSENTYX [Suspect]
     Active Substance: SECUKINUMAB
     Route: 058
  9. METHOTREXATE (TRADE NAME UNKNOWN) [Suspect]
     Active Substance: METHOTREXATE
     Indication: PRODUCT USED FOR UNKNOWN INDICATION
     Route: 065
  10. COSENTYX [Suspect]
     Active Substance: SECUKINUMAB
     Indication: PSORIATIC ARTHROPATHY
     Route: 058
  11. COSENTYX [Suspect]
     Active Substance: SECUKINUMAB
     Indication: PSORIASIS
     Route: 058
  12. COSENTYX [Suspect]
     Active Substance: SECUKINUMAB
     Route: 058

REACTIONS (7)
  - Psoriasis [Recovered/Resolved]
  - Skin infection [Recovered/Resolved]
  - Drug ineffective [Recovered/Resolved]
  - Ankylosing spondylitis [Recovered/Resolved]
  - Purulent discharge [Recovered/Resolved]
  - Scar [Recovered/Resolved]
  - Pain [Recovered/Resolved]
